FAERS Safety Report 18794385 (Version 1)
Quarter: 2021Q1

REPORT INFORMATION
  Report Type: Other
  Country: US (occurrence: US)
  Receive Date: 20210127
  Receipt Date: 20210127
  Transmission Date: 20210419
  Serious: Yes (Hospitalization, Other)
  Sender: FDA-Public Use
  Company Number: US-C B FLEET CO INC-202101-US-000082

PATIENT
  Age: 64 Year
  Sex: Male

DRUGS (4)
  1. IRON SUPPLEMENTS [Concomitant]
     Active Substance: IRON
  2. ASPIRIN. [Suspect]
     Active Substance: ASPIRIN
     Indication: PRODUCT USED FOR UNKNOWN INDICATION
     Dosage: 81MG
     Route: 048
  3. ELIQUIS [Concomitant]
     Active Substance: APIXABAN
     Dosage: 5MG BID
  4. OXYGEN. [Concomitant]
     Active Substance: OXYGEN

REACTIONS (3)
  - Product used for unknown indication [None]
  - Gastrointestinal haemorrhage [Recovered/Resolved]
  - Dieulafoy^s vascular malformation [Recovered/Resolved]
